FAERS Safety Report 9006267 (Version 1)
Quarter: 2013Q1

REPORT INFORMATION
  Report Type: Spontaneous
  Country: US (occurrence: US)
  Receive Date: 20130110
  Receipt Date: 20130110
  Transmission Date: 20140127
  Serious: Yes (Other)
  Sender: FDA-Public Use
  Company Number: US-009507513-0901USA02254

PATIENT
  Age: 5 Year
  Sex: Male
  Weight: 18.14 kg

DRUGS (2)
  1. SINGULAIR [Suspect]
     Indication: MULTIPLE ALLERGIES
     Dosage: 10 MG, QD
     Route: 048
     Dates: start: 20080714, end: 20080909
  2. SINGULAIR [Suspect]
     Indication: ASTHMA

REACTIONS (4)
  - Mood swings [Unknown]
  - Abdominal pain upper [Unknown]
  - Headache [Unknown]
  - Overdose [Unknown]
